FAERS Safety Report 6737659-X (Version None)
Quarter: 2010Q2

REPORT INFORMATION
  Report Type: 
  Country: None (occurrence: None)
  Receive Date: 20100521
  Receipt Date: 20100521
  Transmission Date: 20101027
  Serious: Yes (Death)
  Sender: FDA-Public Use
  Company Number: None

PATIENT
  Age: 51 Year
  Sex: Female
  Weight: 86.1834 kg

DRUGS (2)
  1. ELMIRON [Suspect]
     Indication: CYSTITIS INTERSTITIAL
     Dosage: 100MG Q 8 PO
     Route: 048
     Dates: start: 20060101, end: 20100208
  2. HEPARIN [Suspect]
     Dosage: 5000 UNITS Q 8 SQ
     Route: 058
     Dates: start: 20100208, end: 20100209

REACTIONS (5)
  - CARDIAC FAILURE [None]
  - DRUG ADMINISTRATION ERROR [None]
  - HAEMORRHAGE [None]
  - HEPATIC FAILURE [None]
  - RENAL FAILURE [None]
